FAERS Safety Report 15348420 (Version 1)
Quarter: 2018Q3

REPORT INFORMATION
  Report Type: Spontaneous
  Country: US (occurrence: US)
  Receive Date: 20180829
  Receipt Date: 20180829
  Transmission Date: 20181010
  Serious: Yes (Hospitalization)
  Sender: FDA-Public Use
  Company Number: None

PATIENT
  Age: 64 Year
  Sex: Male
  Weight: 103 kg

DRUGS (2)
  1. CIPROFLOXACIN. [Suspect]
     Active Substance: CIPROFLOXACIN
     Indication: PROSTATITIS
     Route: 048
     Dates: start: 20180302, end: 20180305
  2. CIPROFLOXACIN. [Suspect]
     Active Substance: CIPROFLOXACIN
     Indication: PROSTATITIS
     Route: 041
     Dates: start: 20180228, end: 20180302

REACTIONS (7)
  - General physical health deterioration [None]
  - Mental status changes [None]
  - Delirium [None]
  - Confusional state [None]
  - Disease progression [None]
  - Dementia [None]
  - Abnormal behaviour [None]

NARRATIVE: CASE EVENT DATE: 20180301
